FAERS Safety Report 18012566 (Version 3)
Quarter: 2021Q2

REPORT INFORMATION
  Report Type: Spontaneous
  Country: US (occurrence: US)
  Receive Date: 20200713
  Receipt Date: 20210616
  Transmission Date: 20210717
  Serious: Yes (Other)
  Sender: FDA-Public Use
  Company Number: US-GILEAD-2020-0481794

PATIENT
  Age: 52 Year
  Sex: Male
  Weight: 82.55 kg

DRUGS (40)
  1. VIREAD [Suspect]
     Active Substance: TENOFOVIR DISOPROXIL FUMARATE
     Indication: HIV INFECTION
     Dosage: UNK
     Route: 048
     Dates: start: 200403, end: 200701
  2. GENVOYA [Concomitant]
     Active Substance: COBICISTAT\ELVITEGRAVIR\EMTRICITABINE\TENOFOVIR ALAFENAMIDE FUMARATE
  3. LANTUS [Concomitant]
     Active Substance: INSULIN GLARGINE
  4. VOLTAREN [DICLOFENAC] [Concomitant]
     Active Substance: DICLOFENAC SODIUM
  5. HALOBETASOL PROP [Concomitant]
  6. EMTRIVA [Concomitant]
     Active Substance: EMTRICITABINE
  7. RANITIDINE. [Concomitant]
     Active Substance: RANITIDINE
  8. KALETRA [Concomitant]
     Active Substance: LOPINAVIR\RITONAVIR
  9. TRAVATAN [Concomitant]
     Active Substance: TRAVOPROST
  10. TRUVADA [Suspect]
     Active Substance: EMTRICITABINE\TENOFOVIR DISOPROXIL FUMARATE
     Indication: HIV INFECTION
     Dosage: UNK
     Route: 048
     Dates: start: 200701, end: 201401
  11. ATRIPLA [Suspect]
     Active Substance: EFAVIRENZ\EMTRICITABINE\TENOFOVIR DISOPROXIL FUMARATE
     Indication: HIV INFECTION
     Dosage: UNK
     Route: 048
     Dates: start: 2004, end: 2007
  12. NAPROXEN. [Concomitant]
     Active Substance: NAPROXEN
  13. IBUPROFEN. [Concomitant]
     Active Substance: IBUPROFEN
  14. DICYCLOMINE [Concomitant]
     Active Substance: DICYCLOMINE HYDROCHLORIDE
  15. TIMOLOL MALEATE. [Concomitant]
     Active Substance: TIMOLOL MALEATE
  16. CIALIS [Concomitant]
     Active Substance: TADALAFIL
  17. ILEVRO [Concomitant]
     Active Substance: NEPAFENAC
  18. CHANTIX [Concomitant]
     Active Substance: VARENICLINE TARTRATE
  19. COMBIGAN [Concomitant]
     Active Substance: BRIMONIDINE TARTRATE\TIMOLOL MALEATE
  20. ACETAMINOPHEN. [Concomitant]
     Active Substance: ACETAMINOPHEN
  21. PREZISTA [Concomitant]
     Active Substance: DARUNAVIR ETHANOLATE
  22. LIPITOR [Concomitant]
     Active Substance: ATORVASTATIN CALCIUM
  23. NOVOLIN 10R [Concomitant]
  24. CLARITHROMYCIN. [Concomitant]
     Active Substance: CLARITHROMYCIN
  25. DUREZOL [Concomitant]
     Active Substance: DIFLUPREDNATE
  26. BENZONATATE. [Concomitant]
     Active Substance: BENZONATATE
  27. AMOXICILLIN. [Concomitant]
     Active Substance: AMOXICILLIN
  28. PREDNISOLONE. [Concomitant]
     Active Substance: PREDNISOLONE
  29. ISENTRESS [Concomitant]
     Active Substance: RALTEGRAVIR POTASSIUM
  30. ZIAGEN [Concomitant]
     Active Substance: ABACAVIR SULFATE
  31. LIDOCAINE. [Concomitant]
     Active Substance: LIDOCAINE
  32. CIPROFLOXACIN. [Concomitant]
     Active Substance: CIPROFLOXACIN
  33. SODIUM BICARBONATE. [Concomitant]
     Active Substance: SODIUM BICARBONATE
  34. OMEPRAZOLE. [Concomitant]
     Active Substance: OMEPRAZOLE
  35. TIVICAY [Concomitant]
     Active Substance: DOLUTEGRAVIR SODIUM
  36. PROCTOSOL [Concomitant]
  37. ATORVASTATIN [Concomitant]
     Active Substance: ATORVASTATIN
  38. ONGLYZA [SAXAGLIPTIN HYDROCHLORIDE] [Concomitant]
  39. CREON [Concomitant]
     Active Substance: PANCRELIPASE AMYLASE\PANCRELIPASE LIPASE\PANCRELIPASE PROTEASE
  40. LYRICA [Concomitant]
     Active Substance: PREGABALIN

REACTIONS (5)
  - End stage renal disease [Not Recovered/Not Resolved]
  - Renal failure [Unknown]
  - Pain [Unknown]
  - Chronic kidney disease [Unknown]
  - Emotional distress [Unknown]

NARRATIVE: CASE EVENT DATE: 200703
